FAERS Safety Report 21791712 (Version 5)
Quarter: 2023Q4

REPORT INFORMATION
  Report Type: Report from Study
  Country: CO (occurrence: CO)
  Receive Date: 20221229
  Receipt Date: 20231009
  Transmission Date: 20240110
  Serious: Yes (Life-Threatening, Hospitalization, Other)
  Sender: FDA-Public Use
  Company Number: CO-ABBVIE-4251116

PATIENT
  Age: 57 Year
  Sex: Female
  Weight: 90 kg

DRUGS (2)
  1. HUMIRA [Suspect]
     Active Substance: ADALIMUMAB
     Indication: Rheumatoid arthritis
     Dosage: FORM STRENGTH: 40 MG?START DATE TEXT: UNKNOWN
     Route: 058
     Dates: end: 20221130
  2. HUMIRA [Suspect]
     Active Substance: ADALIMUMAB

REACTIONS (18)
  - Finger amputation [Recovering/Resolving]
  - Headache [Recovering/Resolving]
  - Pyrexia [Recovering/Resolving]
  - Localised infection [Recovering/Resolving]
  - Vaginal discharge [Recovering/Resolving]
  - Immunodeficiency [Recovering/Resolving]
  - Infection [Recovering/Resolving]
  - Overweight [Recovering/Resolving]
  - Vaginal cyst [Recovering/Resolving]
  - Bacterial infection [Recovering/Resolving]
  - Gastrointestinal injury [Recovering/Resolving]
  - Mouth cyst [Recovering/Resolving]
  - Anal incontinence [Recovering/Resolving]
  - Loss of personal independence in daily activities [Recovering/Resolving]
  - Renal injury [Recovering/Resolving]
  - Dizziness [Recovering/Resolving]
  - Wound [Recovering/Resolving]
  - Vulvovaginal discomfort [Recovering/Resolving]

NARRATIVE: CASE EVENT DATE: 20221201
